FAERS Safety Report 6376734-9 (Version None)
Quarter: 2009Q3

REPORT INFORMATION
  Report Type: 
  Country: None (occurrence: None)
  Receive Date: 20090924
  Receipt Date: 20090924
  Transmission Date: 20100115
  Serious: Yes (Other)
  Sender: FDA-Public Use
  Company Number: None

PATIENT
  Sex: Male
  Weight: 77.1115 kg

DRUGS (2)
  1. RISPERDAL [Suspect]
     Indication: DELUSION
     Dosage: FEW YEARS 45MG TWICE MONTH  FEW YEARS 35MG TWICE MONTH
     Dates: start: 20050101
  2. RISPERDAL [Suspect]
     Indication: SCHIZOPHRENIA
     Dosage: FEW YEARS 45MG TWICE MONTH  FEW YEARS 35MG TWICE MONTH
     Dates: start: 20050101

REACTIONS (18)
  - BLADDER PERFORATION [None]
  - CHEST PAIN [None]
  - CONFUSIONAL STATE [None]
  - DYSPNOEA [None]
  - ERYTHEMA [None]
  - FATIGUE [None]
  - FEELING HOT [None]
  - HYPERHIDROSIS [None]
  - MALAISE [None]
  - MUSCULOSKELETAL STIFFNESS [None]
  - NASAL CONGESTION [None]
  - POLYDIPSIA [None]
  - PROSTATOMEGALY [None]
  - RASH [None]
  - SKIN DISCOLOURATION [None]
  - SOMNOLENCE [None]
  - URINARY TRACT PAIN [None]
  - WEIGHT DECREASED [None]
